FAERS Safety Report 4777964-X (Version None)
Quarter: 2005Q3

REPORT INFORMATION
  Report Type: 
  Country: None (occurrence: None)
  Receive Date: 20050921
  Receipt Date: 20050901
  Transmission Date: 20060218
  Serious: Yes (Life-Threatening, Hospitalization)
  Sender: FDA-Public Use
  Company Number: JP_050907491

PATIENT
  Age: 28 Year
  Sex: Male

DRUGS (10)
  1. ZYPREXA [Suspect]
     Indication: SCHIZOPHRENIA
     Dosage: 10 MG DAY
     Route: 048
     Dates: start: 20040727
  2. LODOPIN              (ZOTEPINE) [Concomitant]
  3. HIRNAMIN          (LEVOMEPROMAZINE) [Concomitant]
  4. BARNETIL            (SULTOPRIDE) [Concomitant]
  5. PYRETHIA                    (PROMETHAZINE HYDROCHLORIDE) [Concomitant]
  6. ROHYPNOL            (FLUNITRAZEPAM) [Concomitant]
  7. TEGRETOL [Concomitant]
  8. MAGNESIUM OXIDE [Concomitant]
  9. PURSENNID [Concomitant]
  10. METLIGINE     (MIDODRINE HYDROCHLORIDE) [Concomitant]

REACTIONS (7)
  - DEPRESSED LEVEL OF CONSCIOUSNESS [None]
  - DISSEMINATED INTRAVASCULAR COAGULATION [None]
  - MUSCULOSKELETAL STIFFNESS [None]
  - PNEUMONIA [None]
  - RHABDOMYOLYSIS [None]
  - SEPSIS [None]
  - SPEECH DISORDER [None]
